FAERS Safety Report 6429195-5 (Version None)
Quarter: 2009Q4

REPORT INFORMATION
  Report Type: 
  Country: None (occurrence: None)
  Receive Date: 20091105
  Receipt Date: 20091021
  Transmission Date: 20100525
  Serious: Yes (Other)
  Sender: FDA-Public Use
  Company Number: FR-GENENTECH-293585

PATIENT
  Sex: Male

DRUGS (1)
  1. XOLAIR [Suspect]
     Indication: ASTHMA
     Dosage: 375 MG, Q15D
     Route: 058

REACTIONS (5)
  - BLOOD PRESSURE INCREASED [None]
  - INJECTION SITE PAIN [None]
  - MALAISE [None]
  - PRESYNCOPE [None]
  - TACHYCARDIA [None]
